FAERS Safety Report 21773092 (Version 1)
Quarter: 2022Q4

REPORT INFORMATION
  Report Type: Spontaneous
  Country: US (occurrence: US)
  Receive Date: 20221223
  Receipt Date: 20221223
  Transmission Date: 20230112
  Serious: No
  Sender: FDA-Public Use
  Company Number: US-CTI BIOPHARMA-2022US03189

PATIENT

DRUGS (1)
  1. VONJO [Suspect]
     Active Substance: PACRITINIB
     Indication: Acute myeloid leukaemia
     Dosage: UNK
     Dates: start: 20220808, end: 20220921

REACTIONS (3)
  - Nausea [Unknown]
  - Off label use [Unknown]
  - Acute myeloid leukaemia [Unknown]
